FAERS Safety Report 18862819 (Version 3)
Quarter: 2021Q1

REPORT INFORMATION
  Report Type: Other
  Country: US (occurrence: US)
  Receive Date: 20210208
  Receipt Date: 20210318
  Transmission Date: 20210420
  Serious: Yes (Other)
  Sender: FDA-Public Use
  Company Number: US-ROCHE-2758208

PATIENT
  Age: 38 Year
  Sex: Female
  Weight: 64.92 kg

DRUGS (24)
  1. MAGNESIUM OXIDE. [Concomitant]
     Active Substance: MAGNESIUM OXIDE
     Dosage: DAILY
  2. DOK [Concomitant]
     Active Substance: DOCUSATE SODIUM
  3. IMITREX [Concomitant]
     Active Substance: SUMATRIPTAN SUCCINATE
  4. PHENERGAN [Concomitant]
     Active Substance: PROMETHAZINE HYDROCHLORIDE
     Indication: VOMITING
  5. TORADOL [Concomitant]
     Active Substance: KETOROLAC TROMETHAMINE
     Indication: PAIN
  6. TECFIDERA [Concomitant]
     Active Substance: DIMETHYL FUMARATE
  7. AMPYRA [Concomitant]
     Active Substance: DALFAMPRIDINE
     Route: 048
     Dates: start: 20200721
  8. ZINC SULFATE. [Concomitant]
     Active Substance: ZINC SULFATE
     Dosage: DAILY
  9. ESTRACE [Concomitant]
     Active Substance: ESTRADIOL
  10. FLONASE [Concomitant]
     Active Substance: FLUTICASONE PROPIONATE
     Dosage: 50 MCG AS NEEDED
  11. BACLOFEN. [Concomitant]
     Active Substance: BACLOFEN
     Indication: PAIN
     Dates: start: 20200721
  12. AMBIEN [Concomitant]
     Active Substance: ZOLPIDEM TARTRATE
     Indication: INSOMNIA
     Dosage: TAKE ONE TABLET  BY MOUTH NIGHTLY AS NEEDED
  13. PHENERGAN [Concomitant]
     Active Substance: PROMETHAZINE HYDROCHLORIDE
     Indication: NAUSEA
  14. OSCAL [Concomitant]
     Active Substance: CALCIUM CARBONATE
  15. OCREVUS [Suspect]
     Active Substance: OCRELIZUMAB
     Indication: RELAPSING-REMITTING MULTIPLE SCLEROSIS
     Dosage: DATE OF TREATMENT 02/NOV/ 2018, 30/MAY/2018, 01/JUN/2019, 1/JUN/2019, 05/JUN/2020, 07/DEC/2020
     Route: 042
     Dates: start: 201711
  16. BENADRYL [Concomitant]
     Active Substance: DIPHENHYDRAMINE HYDROCHLORIDE
  17. PROVIGIL [Concomitant]
     Active Substance: MODAFINIL
  18. AMANTADINE HCL [Concomitant]
     Active Substance: AMANTADINE HYDROCHLORIDE
     Route: 048
     Dates: start: 20200721
  19. TRILEPTAL [Concomitant]
     Active Substance: OXCARBAZEPINE
  20. PROBIOTIC 10 [Concomitant]
     Active Substance: DIETARY SUPPLEMENT\PROBIOTICS
  21. ANUSOL HC [Concomitant]
     Active Substance: HYDROCORTISONE
     Indication: PRURITUS
  22. GABAPENTIN. [Concomitant]
     Active Substance: GABAPENTIN
     Dosage: 1 CAPSULE BY MOUTH
     Route: 048
  23. SOLU?MEDROL [Concomitant]
     Active Substance: METHYLPREDNISOLONE SODIUM SUCCINATE
  24. RESTASIS [Concomitant]
     Active Substance: CYCLOSPORINE
     Dosage: DROP IN BOTH EYE

REACTIONS (5)
  - Multiple sclerosis relapse [Not Recovered/Not Resolved]
  - COVID-19 [Recovering/Resolving]
  - Multiple sclerosis [Not Recovered/Not Resolved]
  - Blindness transient [Recovered/Resolved]
  - Visual field defect [Not Recovered/Not Resolved]

NARRATIVE: CASE EVENT DATE: 20210121
